FAERS Safety Report 21300702 (Version 1)
Quarter: 2022Q3

REPORT INFORMATION
  Report Type: Spontaneous
  Country: GR (occurrence: None)
  Receive Date: 20220907
  Receipt Date: 20220907
  Transmission Date: 20221027
  Serious: Yes (Other)
  Sender: FDA-Public Use
  Company Number: GR-ROCHE-3174190

PATIENT
  Sex: Female

DRUGS (12)
  1. RITUXIMAB [Suspect]
     Active Substance: RITUXIMAB
     Indication: Diffuse large B-cell lymphoma
     Dosage: 1ST LINE SYSTEMIC TREATMENT (R-FC) PARTIAL REMISSION
     Route: 065
     Dates: start: 20200622, end: 20201222
  2. RITUXIMAB [Suspect]
     Active Substance: RITUXIMAB
     Dosage: 2ND LINE SYSTEMIC TREATMENT (RITUXIMAB-VENETOCLAX) PROGRESSIVE DISEASE
     Route: 065
     Dates: start: 20210601, end: 20220101
  3. RITUXIMAB [Suspect]
     Active Substance: RITUXIMAB
     Dosage: 5TH LINE SYSTEMIC TREATMENT (R-DHAP) PROGRESSIVE DISEASE
     Route: 065
     Dates: start: 20220627, end: 20220724
  4. RITUXIMAB [Suspect]
     Active Substance: RITUXIMAB
     Dosage: 4TH LINE SYSTEMIC TREATMENT (POLA-BR FROM 11/APR/2022-24/MAY/2022 FOLLOWED BY RADIOTHERAPY FROM 26/M
     Route: 065
     Dates: start: 20220411, end: 20220524
  5. VENETOCLAX [Suspect]
     Active Substance: VENETOCLAX
     Indication: Diffuse large B-cell lymphoma
     Dosage: 2ND LINE SYSTEMIC TREATMENT (RITUXIMAB-VENETOCLAX) PROGRESSIVE DISEASE
     Route: 065
     Dates: start: 20210601, end: 20220101
  6. POLIVY [Suspect]
     Active Substance: POLATUZUMAB VEDOTIN-PIIQ
     Indication: Diffuse large B-cell lymphoma
     Dosage: 4TH LINE SYSTEMIC TREATMENT (POLA-BR FROM 11/APR/2022-24/MAY/2022 FOLLOWED BY RADIOTHERAPY FROM 26/M
     Route: 065
     Dates: start: 20220411, end: 20220524
  7. OBINUTUZUMAB [Suspect]
     Active Substance: OBINUTUZUMAB
     Indication: Diffuse large B-cell lymphoma
     Dosage: 3RD LINE SYSTEMIC TREATMENT (OBINUTUZUMAB- CHOP) PROGRESSIVE DISEASE
     Route: 042
     Dates: start: 20220110, end: 20220405
  8. FLUDARABINE [Suspect]
     Active Substance: FLUDARABINE PHOSPHATE
     Indication: Diffuse large B-cell lymphoma
     Dosage: 1ST LINE SYSTEMIC TREATMENT (R-FC) PARTIAL REMISSION
     Route: 065
     Dates: start: 20200622, end: 20201222
  9. CYCLOPHOSPHAMIDE [Suspect]
     Active Substance: CYCLOPHOSPHAMIDE
     Indication: Diffuse large B-cell lymphoma
     Dosage: 1ST LINE SYSTEMIC TREATMENT (R-FC) PARTIAL REMISSION
     Route: 065
     Dates: start: 20200622, end: 20201222
  10. CYCLOPHOSPHAMIDE\DOXORUBICIN\PREDNISONE\VINCRISTINE [Suspect]
     Active Substance: CYCLOPHOSPHAMIDE\DOXORUBICIN\PREDNISONE\VINCRISTINE
     Indication: Diffuse large B-cell lymphoma
     Dosage: 3RD LINE SYSTEMIC TREATMENT (OBINUTUZUMAB- CHOP) PROGRESSIVE DISEASE
     Route: 065
     Dates: start: 20220110, end: 20220405
  11. BENDAMUSTINE [Suspect]
     Active Substance: BENDAMUSTINE
     Indication: Diffuse large B-cell lymphoma
     Dosage: 4TH LINE SYSTEMIC TREATMENT (POLA-BR FROM 11/APR/2022-24/MAY/2022 FOLLOWED BY RADIOTHERAPY FROM 26/M
     Route: 065
     Dates: start: 20220411, end: 20220524
  12. CISPLATIN\CYTARABINE\DEXAMETHASONE [Suspect]
     Active Substance: CISPLATIN\CYTARABINE\DEXAMETHASONE
     Indication: Diffuse large B-cell lymphoma
     Dosage: 5TH LINE SYSTEMIC TREATMENT (R-DHAP) PROGRESSIVE DISEASE
     Route: 065
     Dates: start: 20220627, end: 20220724

REACTIONS (2)
  - Disease progression [Unknown]
  - Off label use [Unknown]
